FAERS Safety Report 18977641 (Version 1)
Quarter: 2021Q1

REPORT INFORMATION
  Report Type: Report from Study
  Country: TH (occurrence: TH)
  Receive Date: 20210306
  Receipt Date: 20210306
  Transmission Date: 20210420
  Serious: Yes (Hospitalization)
  Sender: FDA-Public Use
  Company Number: NVSC2021TH044874

PATIENT
  Sex: Female

DRUGS (1)
  1. ENTRESTO [Suspect]
     Active Substance: SACUBITRIL\VALSARTAN
     Indication: CARDIAC FAILURE
     Dosage: 0.5 MG, BID (HALF TAB IN MORNING AND HALF TAB IN EVENING)
     Route: 065

REACTIONS (2)
  - Coronary artery stenosis [Unknown]
  - Wrong technique in product usage process [Unknown]
